FAERS Safety Report 18556312 (Version 8)
Quarter: 2025Q3

REPORT INFORMATION
  Report Type: Spontaneous
  Country: EU (occurrence: EU)
  Receive Date: 20201128
  Receipt Date: 20250909
  Transmission Date: 20251020
  Serious: Yes (Other)
  Sender: MERCK SHARP & DOHME LLC
  Company Number: None

PATIENT
  Age: 75 Year
  Sex: Male

DRUGS (19)
  1. IMIPENEM AND CILASTATIN [Suspect]
     Active Substance: CILASTATIN SODIUM\IMIPENEM
     Indication: Enterobacter infection
     Dates: start: 201802, end: 201802
  2. PIPERACILLIN SODIUM\TAZOBACTAM SODIUM [Suspect]
     Active Substance: PIPERACILLIN SODIUM\TAZOBACTAM SODIUM
     Indication: Enterobacter infection
     Dates: start: 2018, end: 201802
  3. MEROPENEM [Suspect]
     Active Substance: MEROPENEM
     Indication: Enterobacter infection
     Dates: start: 201803, end: 201803
  4. MEROPENEM [Suspect]
     Active Substance: MEROPENEM
     Indication: Enterobacter infection
     Dates: start: 201803, end: 201804
  5. MEROPENEM [Suspect]
     Active Substance: MEROPENEM
     Indication: Enterobacter infection
     Dates: start: 201804, end: 201805
  6. AVIBACTAM SODIUM\CEFTAZIDIME [Suspect]
     Active Substance: AVIBACTAM SODIUM\CEFTAZIDIME
     Indication: Enterobacter infection
     Dates: start: 201805, end: 201805
  7. AMIKACIN [Suspect]
     Active Substance: AMIKACIN
     Indication: Enterobacter infection
     Dates: start: 201802, end: 201802
  8. AMIKACIN [Suspect]
     Active Substance: AMIKACIN
     Indication: Enterobacter infection
     Dates: start: 201803, end: 201803
  9. AMIKACIN [Suspect]
     Active Substance: AMIKACIN
     Indication: Enterobacter infection
     Dates: start: 201804, end: 201804
  10. LEVOFLOXACIN [Suspect]
     Active Substance: LEVOFLOXACIN
     Indication: Enterobacter infection
     Dates: start: 201803, end: 201803
  11. COTRIMOXAZOLE [Suspect]
     Active Substance: SULFAMETHOXAZOLE\TRIMETHOPRIM
     Indication: Enterobacter infection
     Dates: start: 201804, end: 201804
  12. VANCOMYCIN [Suspect]
     Active Substance: VANCOMYCIN
     Indication: Enterobacter infection
     Dates: start: 201801, end: 201802
  13. VANCOMYCIN [Suspect]
     Active Substance: VANCOMYCIN
     Indication: Enterobacter infection
     Dates: start: 201803, end: 201803
  14. LINEZOLID [Suspect]
     Active Substance: LINEZOLID
     Indication: Enterobacter infection
     Dates: start: 201802, end: 201802
  15. LINEZOLID [Suspect]
     Active Substance: LINEZOLID
     Indication: Enterobacter infection
     Dates: start: 201804, end: 201804
  16. ERYTHROMYCIN [Suspect]
     Active Substance: ERYTHROMYCIN
     Indication: Enterobacter infection
     Dates: start: 2018, end: 2018
  17. CEFTAROLINE [Suspect]
     Active Substance: CEFTAROLINE
     Indication: Enterobacter infection
     Dates: start: 201803, end: 201803
  18. DAPTOMYCIN [Suspect]
     Active Substance: DAPTOMYCIN
     Indication: Staphylococcal infection
     Dates: start: 201803, end: 201803
  19. DAPTOMYCIN [Suspect]
     Active Substance: DAPTOMYCIN
     Indication: Staphylococcal infection
     Dates: start: 201804, end: 201804

REACTIONS (2)
  - Pathogen resistance [Unknown]
  - Treatment failure [Unknown]

NARRATIVE: CASE EVENT DATE: 20180101
